FAERS Safety Report 5702347-5 (Version None)
Quarter: 2008Q2

REPORT INFORMATION
  Report Type: 
  Country: None (occurrence: None)
  Receive Date: 20080411
  Receipt Date: 20080403
  Transmission Date: 20081010
  Serious: Yes (Other)
  Sender: FDA-Public Use
  Company Number: US-GENENTECH-257532

PATIENT
  Age: 81 Year
  Sex: Female

DRUGS (7)
  1. BEVACIZUMAB [Suspect]
     Indication: COLON CANCER
     Dosage: 5 MG/KG, Q2W
     Dates: start: 20060101, end: 20071231
  2. PEGFILGRASTIM [Concomitant]
     Indication: DRUG USE FOR UNKNOWN INDICATION
  3. FOLINIC ACID [Concomitant]
     Indication: COLON CANCER
     Dosage: 400 MG/M2, Q2W
     Route: 042
     Dates: start: 20061120
  4. FLUOROURACIL [Concomitant]
     Indication: COLON CANCER
     Dosage: 400 MG/M2, Q2W
     Route: 040
     Dates: start: 20061120
  5. FLUOROURACIL [Concomitant]
     Dosage: 240 MG/M2, Q2W
     Route: 042
     Dates: start: 20061120
  6. OXALIPLATIN [Concomitant]
     Indication: COLON CANCER
     Dosage: 85 MG/M2, Q2W
     Route: 042
     Dates: start: 20061120
  7. CETUXIMAB [Concomitant]
     Indication: COLON CANCER
     Dosage: 250 MG/M2, 1/WEEK
     Route: 042
     Dates: start: 20061120

REACTIONS (2)
  - ASCITES [None]
  - PORTAL HYPERTENSION [None]
